FAERS Safety Report 22118524 (Version 1)
Quarter: 2023Q1

REPORT INFORMATION
  Report Type: Spontaneous
  Country: NL (occurrence: NL)
  Receive Date: 20230321
  Receipt Date: 20230321
  Transmission Date: 20230418
  Serious: Yes (Hospitalization)
  Sender: FDA-Public Use
  Company Number: NL-CHEPLA-2023003557

PATIENT
  Age: 8 Year
  Sex: Male

DRUGS (8)
  1. CLONAZEPAM [Suspect]
     Active Substance: CLONAZEPAM
     Indication: Dystonia
  2. GABAPENTIN [Suspect]
     Active Substance: GABAPENTIN
     Indication: Dystonia
  3. TRIHEXYPHENIDYL [Suspect]
     Active Substance: TRIHEXYPHENIDYL
     Indication: Dystonia
  4. HALOPERIDOL [Suspect]
     Active Substance: HALOPERIDOL
     Indication: Dystonia
  5. MIDAZOLAM [Concomitant]
     Active Substance: MIDAZOLAM
  6. PROPOFOL [Concomitant]
     Active Substance: PROPOFOL
  7. FENTANYL [Concomitant]
     Active Substance: FENTANYL
  8. CLONIDINE [Concomitant]
     Active Substance: CLONIDINE

REACTIONS (2)
  - Intensive care [Unknown]
  - Product use in unapproved indication [Unknown]
